FAERS Safety Report 19681649 (Version 3)
Quarter: 2021Q3

REPORT INFORMATION
  Report Type: Spontaneous
  Country: JP (occurrence: JP)
  Receive Date: 20210810
  Receipt Date: 20210831
  Transmission Date: 20211014
  Serious: Yes (Death, Other)
  Sender: FDA-Public Use
  Company Number: JP-PFIZER INC-2016073462

PATIENT
  Age: 88 Year
  Sex: Male

DRUGS (7)
  1. GABEXATE MESILATE [Suspect]
     Active Substance: GABEXATE MESYLATE
     Dosage: 1500 MG, UNK
     Route: 042
  2. DICLOFENAC SODIUM. [Concomitant]
     Active Substance: DICLOFENAC SODIUM
     Indication: BACK PAIN
     Dosage: UNK UNK, TID
     Route: 048
  3. CLINDAMYCIN PHOSPHATE. [Suspect]
     Active Substance: CLINDAMYCIN PHOSPHATE
     Dosage: 1200 MG, UNK
     Route: 042
  4. MEROPENEM. [Suspect]
     Active Substance: MEROPENEM
     Dosage: 1 G, UNK
     Route: 042
  5. THROMBIN [Suspect]
     Active Substance: THROMBIN
     Dosage: 20000 IU, UNK
     Route: 065
  6. TAKEPRON [Suspect]
     Active Substance: LANSOPRAZOLE
     Indication: HAEMATEMESIS
     Dosage: 60 MG, UNK
     Route: 042
  7. ALUMINUM HYDROXIDE GEL [Suspect]
     Active Substance: ALGELDRATE
     Dosage: 80 ML, UNK
     Route: 065

REACTIONS (3)
  - Respiratory failure [Fatal]
  - Haematemesis [Unknown]
  - Pneumonia aspiration [Unknown]
